FAERS Safety Report 7642709-2 (Version None)
Quarter: 2011Q3

REPORT INFORMATION
  Report Type: 
  Country: None (occurrence: None)
  Receive Date: 20110728
  Receipt Date: 20110726
  Transmission Date: 20111222
  Serious: No
  Sender: FDA-Public Use
  Company Number: US-PFIZER INC-2011170170

PATIENT
  Sex: Female
  Weight: 63.5 kg

DRUGS (3)
  1. PRISTIQ [Suspect]
     Indication: DEPRESSION
     Dosage: 50 MG, DAILY
     Route: 048
     Dates: start: 20110724, end: 20110725
  2. PRISTIQ [Suspect]
     Indication: ANXIETY
  3. ZYRTEC [Concomitant]
     Indication: SEASONAL ALLERGY
     Dosage: UNK

REACTIONS (3)
  - INSOMNIA [None]
  - DECREASED APPETITE [None]
  - NAUSEA [None]
